FAERS Safety Report 7986464-5 (Version None)
Quarter: 2011Q4

REPORT INFORMATION
  Report Type: 
  Country: None (occurrence: None)
  Receive Date: 20111216
  Receipt Date: 20110718
  Transmission Date: 20120403
  Serious: No
  Sender: FDA-Public Use
  Company Number: US-BRISTOL-MYERS SQUIBB COMPANY-15911126

PATIENT
  Age: 46 Year
  Sex: Male

DRUGS (6)
  1. LISINOPRIL [Concomitant]
  2. METFORMIN HCL [Concomitant]
  3. ABILIFY [Suspect]
  4. NEURONTIN [Concomitant]
  5. LORATADINE [Concomitant]
  6. NEXIUM [Concomitant]

REACTIONS (1)
  - BLOOD GLUCOSE INCREASED [None]
